FAERS Safety Report 21965779 (Version 7)
Quarter: 2023Q4

REPORT INFORMATION
  Report Type: Report from Study
  Country: BR (occurrence: BR)
  Receive Date: 20230208
  Receipt Date: 20231003
  Transmission Date: 20240110
  Serious: Yes (Hospitalization, Other)
  Sender: FDA-Public Use
  Company Number: BR-AMGEN-BRACT2023018912

PATIENT
  Age: 79 Year
  Sex: Male
  Weight: 71 kg

DRUGS (13)
  1. CARFILZOMIB [Suspect]
     Active Substance: CARFILZOMIB
     Indication: Plasma cell myeloma
     Dosage: UNK
     Route: 065
     Dates: start: 20180724
  2. CARFILZOMIB [Suspect]
     Active Substance: CARFILZOMIB
     Dosage: 45 MILLIGRAM/SQ. METER
     Route: 065
     Dates: start: 20230118
  3. DEXAMETHASONE [Suspect]
     Active Substance: DEXAMETHASONE
     Indication: Plasma cell myeloma
     Dosage: UNK
     Route: 065
     Dates: start: 20180724
  4. DEXAMETHASONE [Suspect]
     Active Substance: DEXAMETHASONE
     Dosage: 12 MILLIGRAM
     Route: 040
     Dates: start: 20230118
  5. CYANOCOBALAMIN\PYRIDOXINE HYDROCHLORIDE\THIAMINE [Concomitant]
     Active Substance: CYANOCOBALAMIN\PYRIDOXINE HYDROCHLORIDE\THIAMINE
     Dosage: UNK
     Dates: start: 2015
  6. BACTRIM [Concomitant]
     Active Substance: SULFAMETHOXAZOLE\TRIMETHOPRIM
     Dosage: UNK
     Route: 065
     Dates: start: 20181212
  7. Tylex [Concomitant]
     Dosage: UNK
     Dates: start: 20191204
  8. DIPYRONE [Concomitant]
     Active Substance: DIPYRONE
     Dosage: UNK
     Route: 065
     Dates: start: 2019
  9. ACETYLCYSTEINE [Concomitant]
     Active Substance: ACETYLCYSTEINE
     Dosage: UNK
     Dates: start: 20211201
  10. AMITRIPTYLINE [Concomitant]
     Active Substance: AMITRIPTYLINE
     Dosage: UNK
     Dates: start: 20220207
  11. TRAMADOL [Concomitant]
     Active Substance: TRAMADOL\TRAMADOL HYDROCHLORIDE
     Dosage: UNK
     Route: 065
     Dates: start: 20220207
  12. ATENOLOL [Concomitant]
     Active Substance: ATENOLOL
     Dosage: UNK
     Dates: start: 20220419
  13. METFORMIN [Concomitant]
     Active Substance: METFORMIN HYDROCHLORIDE
     Dosage: UNK
     Dates: start: 20220207

REACTIONS (1)
  - Carotid artery stenosis [Not Recovered/Not Resolved]

NARRATIVE: CASE EVENT DATE: 20230123
